FAERS Safety Report 10443838 (Version 1)
Quarter: 2014Q3

REPORT INFORMATION
  Report Type: Spontaneous
  Country: IL (occurrence: IL)
  Receive Date: 20140910
  Receipt Date: 20140910
  Transmission Date: 20150326
  Serious: Yes (Other)
  Sender: FDA-Public Use
  Company Number: PHHY2014IL110865

PATIENT
  Age: 23 Year
  Sex: Female

DRUGS (1)
  1. DOXYCYCLINE. [Suspect]
     Active Substance: DOXYCYCLINE
     Indication: ACNE

REACTIONS (7)
  - Oesophagitis [Recovered/Resolved]
  - Chest pain [Recovered/Resolved]
  - Gastrointestinal necrosis [Recovered/Resolved]
  - Odynophagia [Recovered/Resolved]
  - Dysphagia [Recovered/Resolved]
  - Oesophageal ulcer [Recovered/Resolved]
  - Weight decreased [Unknown]
